FAERS Safety Report 12240921 (Version 1)
Quarter: 2016Q2

REPORT INFORMATION
  Report Type: Spontaneous
  Country: US (occurrence: None)
  Receive Date: 20160405
  Receipt Date: 20160405
  Transmission Date: 20160815
  Serious: Yes (Life-Threatening, Hospitalization)
  Sender: FDA-Public Use
  Company Number: None

PATIENT
  Age: 30 Year
  Sex: Female

DRUGS (1)
  1. LIOTHYRONINE (T3) CAPSULES, 25 MCG HTTP://WWW.MADISONJAMESRESEARCHCHE [Suspect]
     Active Substance: LIOTHYRONINE SODIUM
     Indication: WEIGHT DECREASED

REACTIONS (1)
  - Hyperthyroidism [None]

NARRATIVE: CASE EVENT DATE: 20150618
